FAERS Safety Report 7620366-9 (Version None)
Quarter: 2011Q3

REPORT INFORMATION
  Report Type: 
  Country: None (occurrence: None)
  Receive Date: 20110718
  Receipt Date: 20110718
  Transmission Date: 20111222
  Serious: No
  Sender: FDA-Public Use
  Company Number: None

PATIENT
  Age: 56 Year
  Sex: Female
  Weight: 77.11 kg

DRUGS (3)
  1. GABAPENTIN [Suspect]
     Indication: NEURITIS
     Dosage: 3 TIMES
     Route: 048
     Dates: start: 20110711, end: 20110712
  2. GABAPENTIN [Interacting]
  3. NEURONTIN [Interacting]

REACTIONS (3)
  - DYSGEUSIA [None]
  - DRUG HYPERSENSITIVITY [None]
  - PRODUCT SUBSTITUTION ISSUE [None]
